FAERS Safety Report 7454957-5 (Version None)
Quarter: 2011Q2

REPORT INFORMATION
  Report Type: 
  Country: None (occurrence: None)
  Receive Date: 20110503
  Receipt Date: 20110420
  Transmission Date: 20111010
  Serious: Yes (Hospitalization, Other)
  Sender: FDA-Public Use
  Company Number: GB-ELI_LILLY_AND_COMPANY-GB201103005612

PATIENT
  Age: 26 Year
  Sex: Male

DRUGS (1)
  1. OLANZAPINE [Suspect]
     Indication: PERSONALITY DISORDER

REACTIONS (4)
  - TYPE 1 DIABETES MELLITUS [None]
  - OFF LABEL USE [None]
  - HYPOGLYCAEMIA [None]
  - DIABETIC KETOACIDOSIS [None]
